FAERS Safety Report 7919383-0 (Version None)
Quarter: 2011Q4

REPORT INFORMATION
  Report Type: 
  Country: None (occurrence: None)
  Receive Date: 20111116
  Receipt Date: 20111116
  Transmission Date: 20120403
  Serious: Yes (Other)
  Sender: FDA-Public Use
  Company Number: None

PATIENT
  Age: 55 Year
  Sex: Female

DRUGS (2)
  1. EFFEXOR XR [Suspect]
     Indication: MAJOR DEPRESSION
     Dosage: WITH BID PO
     Route: 048
     Dates: start: 20070101
  2. EFFEXOR XR [Suspect]
     Dosage: WITH 9 AM PO
     Route: 048
     Dates: start: 20070101

REACTIONS (4)
  - PRODUCT SUBSTITUTION ISSUE [None]
  - DEPRESSED MOOD [None]
  - ANHEDONIA [None]
  - DRUG INEFFECTIVE [None]
